FAERS Safety Report 12571467 (Version 1)
Quarter: 2016Q3

REPORT INFORMATION
  Report Type: Spontaneous
  Country: JP (occurrence: JP)
  Receive Date: 20160719
  Receipt Date: 20160719
  Transmission Date: 20161109
  Serious: Yes (Other)
  Sender: FDA-Public Use
  Company Number: JP-SA-2016SA127782

PATIENT

DRUGS (1)
  1. ONETAXOTERE [Suspect]
     Active Substance: DOCETAXEL
     Route: 042

REACTIONS (2)
  - White blood cell count decreased [Unknown]
  - Bone marrow failure [Unknown]
